FAERS Safety Report 11212642 (Version 2)
Quarter: 2015Q2

REPORT INFORMATION
  Report Type: Spontaneous
  Country: AT (occurrence: AT)
  Receive Date: 20150623
  Receipt Date: 20150624
  Transmission Date: 20150821
  Serious: Yes (Hospitalization)
  Sender: FDA-Public Use
  Company Number: AT-TEVA-571274ISR

PATIENT
  Age: 38 Year
  Sex: Female
  Weight: 63 kg

DRUGS (14)
  1. PANTOPRAZOLE SODIUM. [Concomitant]
     Active Substance: PANTOPRAZOLE SODIUM
     Dates: start: 201409
  2. STABLON [Concomitant]
     Active Substance: TIANEPTINE
     Dates: start: 20150218
  3. MOVICOL [Concomitant]
     Active Substance: POLYETHYLENE GLYCOL 3350\POTASSIUM CHLORIDE\SODIUM BICARBONATE\SODIUM CHLORIDE
     Dates: start: 20150204, end: 20150222
  4. ZOLDEM [Concomitant]
     Active Substance: ZOLPIDEM TARTRATE
     Dates: start: 20150219
  5. BISOPROLOL [Concomitant]
     Active Substance: BISOPROLOL
     Dates: end: 20150129
  6. LYRICA [Suspect]
     Active Substance: PREGABALIN
     Dates: start: 20150202, end: 20150203
  7. LYRICA [Suspect]
     Active Substance: PREGABALIN
     Dates: start: 20150204, end: 20150209
  8. NOCTOR DRAGEES [Concomitant]
     Dates: start: 20150130, end: 20150201
  9. ABILIFY [Concomitant]
     Active Substance: ARIPIPRAZOLE
     Dates: start: 20150220
  10. MIRTABENE [Suspect]
     Active Substance: MIRTAZAPINE
     Dates: start: 20150127, end: 20150131
  11. ABILIFY [Concomitant]
     Active Substance: ARIPIPRAZOLE
     Dates: start: 20150219, end: 20150219
  12. MUTAN [Concomitant]
     Dates: end: 20150127
  13. DUPHASTON [Concomitant]
     Active Substance: DYDROGESTERONE
     Dates: end: 20150204
  14. MIRTABENE [Suspect]
     Active Substance: MIRTAZAPINE
     Dates: start: 20150201, end: 20150208

REACTIONS (1)
  - Drug-induced liver injury [Recovering/Resolving]

NARRATIVE: CASE EVENT DATE: 20150207
